FAERS Safety Report 22527821 (Version 1)
Quarter: 2023Q2

REPORT INFORMATION
  Report Type: Spontaneous
  Country: US (occurrence: None)
  Receive Date: 20230606
  Receipt Date: 20230606
  Transmission Date: 20230722
  Serious: No
  Sender: FDA-Public Use
  Company Number: US-ROCHE-3322906

PATIENT
  Age: 69 Year
  Sex: Female

DRUGS (1)
  1. ENSPRYNG [Suspect]
     Active Substance: SATRALIZUMAB-MWGE
     Indication: Neuromyelitis optica spectrum disorder
     Route: 058

REACTIONS (3)
  - Nasopharyngitis [Not Recovered/Not Resolved]
  - Sinus congestion [Not Recovered/Not Resolved]
  - Pyrexia [Recovered/Resolved]
